FAERS Safety Report 18931809 (Version 1)
Quarter: 2021Q1

REPORT INFORMATION
  Report Type: Spontaneous
  Country: US (occurrence: US)
  Receive Date: 20210224
  Receipt Date: 20210224
  Transmission Date: 20210420
  Serious: No
  Sender: FDA-Public Use
  Company Number: US-TEVA-2021-US-1882952

PATIENT
  Age: 47 Year
  Sex: Female

DRUGS (5)
  1. QUATIAPINE FUMARATE [Concomitant]
     Route: 048
  2. TRIHEXYPHENIDYL HYDROCHLORIDE. [Concomitant]
     Active Substance: TRIHEXYPHENIDYL HYDROCHLORIDE
     Route: 048
  3. FLUOXETINE [Concomitant]
     Active Substance: FLUOXETINE HYDROCHLORIDE
     Route: 048
  4. AUSTEDO [Suspect]
     Active Substance: DEUTETRABENAZINE
     Indication: TARDIVE DYSKINESIA
     Dosage: 24 MILLIGRAM DAILY; 12 MILLIGRAM BID STARTED IN ??FEB?2021
     Route: 048
     Dates: start: 202102
  5. VENLAFAXINE [Concomitant]
     Active Substance: VENLAFAXINE HYDROCHLORIDE
     Route: 048

REACTIONS (4)
  - Tachyarrhythmia [Unknown]
  - Therapy change [Unknown]
  - Nasal disorder [Unknown]
  - Amnesia [Unknown]
